FAERS Safety Report 8982285 (Version 1)
Quarter: 2012Q4

REPORT INFORMATION
  Report Type: 
  Country: IT (occurrence: IT)
  Receive Date: 20121222
  Receipt Date: 20121222
  Transmission Date: 20130627
  Serious: Yes (Hospitalization)
  Sender: FDA-Public Use
  Company Number: IT-ABBOTT-12P-083-1025782-00

PATIENT
  Age: 24 Year
  Sex: Male

DRUGS (2)
  1. DEPAKIN [Suspect]
     Indication: INTENTIONAL SELF-INJURY
     Dosage: 15 dosage form; Total
     Route: 048
     Dates: start: 20121207, end: 20121207
  2. RIVOTRIL [Suspect]
     Indication: INTENTIONAL SELF-INJURY
     Dosage: drops
     Route: 048
     Dates: start: 20121207, end: 20121207

REACTIONS (1)
  - Toxicity to various agents [Unknown]
